FAERS Safety Report 7992519-1 (Version None)
Quarter: 2011Q4

REPORT INFORMATION
  Report Type: 
  Country: None (occurrence: None)
  Receive Date: 20111219
  Receipt Date: 20110412
  Transmission Date: 20120403
  Serious: No
  Sender: FDA-Public Use
  Company Number: US-ASTRAZENECA-2011SE16463

PATIENT
  Age: 85 Year
  Sex: Female

DRUGS (3)
  1. CRESTOR [Suspect]
     Route: 048
     Dates: end: 20110101
  2. CRESTOR [Suspect]
     Route: 048
     Dates: end: 20110101
  3. CRESTOR [Suspect]
     Route: 048

REACTIONS (5)
  - BACK PAIN [None]
  - GAIT DISTURBANCE [None]
  - DRUG DOSE OMISSION [None]
  - LOW DENSITY LIPOPROTEIN INCREASED [None]
  - SLEEP DISORDER DUE TO GENERAL MEDICAL CONDITION, INSOMNIA TYPE [None]
